FAERS Safety Report 10036004 (Version 2)
Quarter: 2014Q3

REPORT INFORMATION
  Report Type: Spontaneous
  Country: AT (occurrence: AT)
  Receive Date: 20140325
  Receipt Date: 20140707
  Transmission Date: 20150326
  Serious: Yes (Other)
  Sender: FDA-Public Use
  Company Number: AT-ELI_LILLY_AND_COMPANY-AT201403007233

PATIENT
  Age: 43 Year
  Sex: Female
  Weight: 80.75 kg

DRUGS (27)
  1. TRITTICO CR [Interacting]
     Active Substance: TRAZODONE HYDROCHLORIDE
     Indication: PRODUCT USED FOR UNKNOWN INDICATION
     Dosage: 100MG
     Dates: start: 20131123, end: 20131124
  2. SEROQUEL [Interacting]
     Active Substance: QUETIAPINE FUMARATE
     Dosage: 200MG
     Dates: start: 20131130, end: 20131203
  3. SIRDALUD [Concomitant]
     Active Substance: TIZANIDINE
     Indication: PRODUCT USED FOR UNKNOWN INDICATION
     Dosage: 2MG
     Dates: start: 20131122, end: 20131208
  4. CYMBALTA [Interacting]
     Active Substance: DULOXETINE HYDROCHLORIDE
     Dosage: 120 MG, UNKNOWN
     Route: 065
     Dates: start: 20131206
  5. SEROQUEL XR [Interacting]
     Active Substance: QUETIAPINE FUMARATE
     Indication: PRODUCT USED FOR UNKNOWN INDICATION
     Dosage: 200MG
     Dates: start: 20131204, end: 20131204
  6. ZOLDEM [Concomitant]
     Active Substance: ZOLPIDEM TARTRATE
     Indication: PRODUCT USED FOR UNKNOWN INDICATION
     Dosage: 10MG
     Dates: start: 20131127, end: 20131127
  7. CIPRALEX [Interacting]
     Active Substance: ESCITALOPRAM OXALATE
     Dosage: 10MG
     Route: 065
     Dates: start: 20131202, end: 20131202
  8. RIVOTRIL [Concomitant]
     Active Substance: CLONAZEPAM
     Dosage: 1.0MG
     Dates: start: 20131120, end: 20131120
  9. RIVOTRIL [Concomitant]
     Active Substance: CLONAZEPAM
     Dosage: 1.75MG
     Dates: start: 20131121, end: 20131128
  10. RIVOTRIL [Concomitant]
     Active Substance: CLONAZEPAM
     Dosage: 2.75MG
     Dates: start: 20131202, end: 20131215
  11. RIVOTRIL [Concomitant]
     Active Substance: CLONAZEPAM
     Dosage: 2.5MG
     Dates: start: 20131216
  12. DOMINAL FORTE [Concomitant]
     Active Substance: PROTHIPENDYL HYDROCHLORIDE
     Dosage: 40MG
     Dates: start: 20131127, end: 20131127
  13. CYMBALTA [Interacting]
     Active Substance: DULOXETINE HYDROCHLORIDE
     Dosage: 60 MG, UNKNOWN
     Route: 065
     Dates: start: 20131203, end: 20131205
  14. TRITTICO CR [Interacting]
     Active Substance: TRAZODONE HYDROCHLORIDE
     Dosage: 150MG
     Dates: start: 20131125, end: 20131208
  15. VALDOXAN [Suspect]
     Active Substance: AGOMELATINE
     Indication: PRODUCT USED FOR UNKNOWN INDICATION
     Dosage: 1 DF, UNKNOWN
     Route: 065
  16. THROMBO ASS [Concomitant]
     Active Substance: ASPIRIN
     Indication: PRODUCT USED FOR UNKNOWN INDICATION
     Dosage: 100MG
  17. SEROQUEL [Interacting]
     Active Substance: QUETIAPINE FUMARATE
     Indication: PRODUCT USED FOR UNKNOWN INDICATION
     Dosage: 100MG
     Dates: start: 20131128, end: 20131128
  18. SEROQUEL XR [Interacting]
     Active Substance: QUETIAPINE FUMARATE
     Dosage: 300MG
     Dates: start: 20131205, end: 20131208
  19. CYMBALTA [Suspect]
     Active Substance: DULOXETINE HYDROCHLORIDE
     Indication: PRODUCT USED FOR UNKNOWN INDICATION
     Dosage: 30 MG, UNKNOWN
     Route: 065
     Dates: start: 20131202, end: 20131202
  20. CIPRALEX [Interacting]
     Active Substance: ESCITALOPRAM OXALATE
     Dosage: 20MG
     Route: 065
     Dates: start: 20131121, end: 20131201
  21. SEROQUEL [Interacting]
     Active Substance: QUETIAPINE FUMARATE
     Dosage: 150MG
     Dates: start: 20131129, end: 20131129
  22. CIPRALEX [Interacting]
     Active Substance: ESCITALOPRAM OXALATE
     Indication: PRODUCT USED FOR UNKNOWN INDICATION
     Dosage: 10MG
     Route: 065
     Dates: start: 201310, end: 20131120
  23. SEROQUEL XR [Interacting]
     Active Substance: QUETIAPINE FUMARATE
     Dosage: 400MG
     Dates: start: 20131209
  24. LYRICA [Suspect]
     Active Substance: PREGABALIN
     Indication: PRODUCT USED FOR UNKNOWN INDICATION
     Dosage: 150 MG, UNKNOWN
     Route: 065
     Dates: start: 201310, end: 20131124
  25. RIVOTRIL [Concomitant]
     Active Substance: CLONAZEPAM
     Indication: PRODUCT USED FOR UNKNOWN INDICATION
     Dosage: 0.5MG
     Dates: start: 201310, end: 20131119
  26. RIVOTRIL [Concomitant]
     Active Substance: CLONAZEPAM
     Dosage: 1.25MG
     Dates: start: 20131129, end: 20131201
  27. DOMINAL FORTE [Concomitant]
     Active Substance: PROTHIPENDYL HYDROCHLORIDE
     Indication: PRODUCT USED FOR UNKNOWN INDICATION
     Dosage: 80MG
     Dates: start: 20131126, end: 20131126

REACTIONS (4)
  - Drug interaction [Unknown]
  - Vertigo [Unknown]
  - Amaurosis [Unknown]
  - Dry mouth [Recovered/Resolved]
